FAERS Safety Report 17193872 (Version 6)
Quarter: 2020Q3

REPORT INFORMATION
  Report Type: Report from Study
  Country: US (occurrence: US)
  Receive Date: 20191223
  Receipt Date: 20200805
  Transmission Date: 20201102
  Serious: Yes (Other)
  Sender: FDA-Public Use
  Company Number: NVSC2019US075746

PATIENT
  Age: 35 Year
  Sex: Female

DRUGS (1)
  1. GILENYA [Suspect]
     Active Substance: FINGOLIMOD HYDROCHLORIDE
     Indication: RELAPSING-REMITTING MULTIPLE SCLEROSIS
     Dosage: 0.5 MG, QD
     Route: 048
     Dates: start: 20180409

REACTIONS (16)
  - Speech disorder [Unknown]
  - Hemiparesis [Unknown]
  - Dissociation [Unknown]
  - Maternal exposure during pregnancy [Unknown]
  - Hyperventilation [Unknown]
  - Hypertension [Unknown]
  - Memory impairment [Unknown]
  - Bronchitis [Unknown]
  - Cerebrovascular accident [Unknown]
  - Product dose omission issue [Unknown]
  - Heart rate irregular [Unknown]
  - Abortion spontaneous [Unknown]
  - Dysarthria [Unknown]
  - Chest pain [Unknown]
  - Facial paresis [Unknown]
  - Panic attack [Unknown]

NARRATIVE: CASE EVENT DATE: 20191201
